FAERS Safety Report 5058518-7 (Version None)
Quarter: 2006Q2

REPORT INFORMATION
  Report Type: 
  Country: None (occurrence: None)
  Receive Date: 20060627
  Receipt Date: 20050516
  Transmission Date: 20061013
  Serious: Yes (Hospitalization)
  Sender: FDA-Public Use
  Company Number: 402553

PATIENT
  Age: 68 Year
  Sex: Female
  Weight: 62.6 kg

DRUGS (5)
  1. XELODA [Suspect]
     Indication: BREAST CANCER
     Dosage: 4500 MG DAILY ORAL
     Route: 048
     Dates: start: 20050304, end: 20050409
  2. DETROL [Concomitant]
  3. ASPIRIN [Concomitant]
  4. CALCIUM (CALCIUM) [Concomitant]
  5. VAGIFEM [Concomitant]

REACTIONS (12)
  - ASPARTATE AMINOTRANSFERASE INCREASED [None]
  - BLOOD ALKALINE PHOSPHATASE INCREASED [None]
  - BONE MARROW FAILURE [None]
  - DECREASED APPETITE [None]
  - DIARRHOEA [None]
  - FATIGUE [None]
  - FEBRILE NEUTROPENIA [None]
  - MUCOSAL INFLAMMATION [None]
  - PALMAR-PLANTAR ERYTHRODYSAESTHESIA SYNDROME [None]
  - PYREXIA [None]
  - SKIN HYPERPIGMENTATION [None]
  - WHITE BLOOD CELL COUNT DECREASED [None]
